FAERS Safety Report 8911355 (Version 1)
Quarter: 2012Q4

REPORT INFORMATION
  Report Type: 
  Country: US (occurrence: US)
  Receive Date: 20121116
  Receipt Date: 20121116
  Transmission Date: 20130627
  Serious: No
  Sender: FDA-Public Use
  Company Number: US-GLAXOSMITHKLINE-A0998085A

PATIENT
  Age: 57 Year
  Sex: Female
  Weight: 52.3 kg

DRUGS (7)
  1. VOTRIENT [Suspect]
     Indication: PRODUCT USED FOR UNKNOWN INDICATION
     Dosage: 800MG Per day
     Route: 048
  2. OXYCODONE [Concomitant]
     Route: 048
  3. PROCHLORPERAZINE [Concomitant]
     Route: 048
  4. LACTULOSE [Concomitant]
  5. MEGESTROL [Concomitant]
  6. IRON [Concomitant]
     Route: 048
  7. METFORMIN [Concomitant]
     Route: 048

REACTIONS (3)
  - Fatigue [Unknown]
  - Glossitis [Recovered/Resolved]
  - Decreased appetite [Unknown]
